FAERS Safety Report 25964934 (Version 2)
Quarter: 2025Q4

REPORT INFORMATION
  Report Type: Spontaneous
  Country: JP (occurrence: JP)
  Receive Date: 20251027
  Receipt Date: 20251106
  Transmission Date: 20260118
  Serious: Yes (Hospitalization)
  Sender: BAYER HEALTHCARE PHARMACEUTICALS INC.
  Company Number: JP-BAYER-2025A139154

PATIENT
  Age: 65 Year
  Sex: Male

DRUGS (3)
  1. NUBEQA [Suspect]
     Active Substance: DAROLUTAMIDE
     Indication: Hormone-dependent prostate cancer
     Dosage: JUNE-X: STARTED DAROLUTAMIDE, JULY-X+1: DISCONTINUED DAROLUTAMIDE
  2. NUBEQA [Suspect]
     Active Substance: DAROLUTAMIDE
     Indication: Hormone-dependent prostate cancer
     Dosage: AUGUST-X+1: RESUMED DAROLUTAMIDE
  3. DOCETAXEL [Concomitant]
     Active Substance: DOCETAXEL
     Indication: Hormone-dependent prostate cancer
     Dosage: JUNE-X: STARTED DOCETAXEL, NOVEMBER-X: COMPLETED SIX COURSES OF DOCETAXEL

REACTIONS (2)
  - Dehydration [None]
  - Renal impairment [None]
